FAERS Safety Report 14252826 (Version 3)
Quarter: 2018Q4

REPORT INFORMATION
  Report Type: Spontaneous
  Country: GB (occurrence: GB)
  Receive Date: 20171205
  Receipt Date: 20181010
  Transmission Date: 20190204
  Serious: Yes (Hospitalization, Other)
  Sender: FDA-Public Use
  Company Number: GB-ASTRAZENECA-2017SF23131

PATIENT

DRUGS (6)
  1. PREDNISOLONE. [Concomitant]
     Active Substance: PREDNISOLONE
     Indication: COLITIS
     Dosage: UNKNOWN
  2. BUDESONIDE. [Suspect]
     Active Substance: BUDESONIDE
     Indication: COLITIS MICROSCOPIC
     Dosage: UNKNOWN
     Route: 065
     Dates: start: 2014
  3. BUDESONIDE. [Suspect]
     Active Substance: BUDESONIDE
     Indication: DUODENITIS
     Dosage: UNKNOWN
     Route: 065
     Dates: start: 2015
  4. BUDESONIDE. [Suspect]
     Active Substance: BUDESONIDE
     Indication: COLITIS MICROSCOPIC
     Dosage: UNKNOWN
     Route: 065
     Dates: start: 2015
  5. BUDESONIDE. [Suspect]
     Active Substance: BUDESONIDE
     Indication: DUODENITIS
     Dosage: UNKNOWN
     Route: 065
     Dates: start: 2014
  6. MESALAZINE [Suspect]
     Active Substance: MESALAMINE
     Indication: GASTROINTESTINAL INFLAMMATION
     Route: 065
     Dates: start: 2014

REACTIONS (5)
  - Acute kidney injury [Unknown]
  - Prescribed overdose [Recovered/Resolved]
  - Off label use [Recovered/Resolved]
  - Drug ineffective for unapproved indication [Recovered/Resolved]
  - Product use in unapproved indication [Unknown]

NARRATIVE: CASE EVENT DATE: 2014
